FAERS Safety Report 6500322-4 (Version None)
Quarter: 2009Q4

REPORT INFORMATION
  Report Type: 
  Country: None (occurrence: None)
  Receive Date: 20091216
  Receipt Date: 20091204
  Transmission Date: 20100525
  Serious: No
  Sender: FDA-Public Use
  Company Number: FR-ROCHE-673478

PATIENT
  Age: 6 Month
  Sex: Female
  Weight: 5 kg

DRUGS (3)
  1. TAMIFLU [Suspect]
     Indication: PROPHYLAXIS
     Dosage: MORNING AND EVENING
     Route: 048
     Dates: start: 20091203
  2. TAMIFLU [Suspect]
     Dosage: OVERDOSE; IN MORNING
     Route: 048
  3. TAMIFLU [Suspect]
     Dosage: IN EVENING
     Route: 048

REACTIONS (2)
  - NO ADVERSE EVENT [None]
  - OVERDOSE [None]
